FAERS Safety Report 23859785 (Version 1)
Quarter: 2024Q2

REPORT INFORMATION
  Report Type: Spontaneous
  Country: US (occurrence: None)
  Receive Date: 20240515
  Receipt Date: 20240515
  Transmission Date: 20240716
  Serious: No
  Sender: FDA-Public Use
  Company Number: 2024A104671

PATIENT
  Sex: Female

DRUGS (1)
  1. BUDESONIDE\FORMOTEROL [Suspect]
     Active Substance: BUDESONIDE\FORMOTEROL
     Route: 055
     Dates: start: 20180101

REACTIONS (5)
  - Asthma [Unknown]
  - Malaise [Unknown]
  - Dizziness [Unknown]
  - Drug dose omission by device [Unknown]
  - Device delivery system issue [Unknown]
